FAERS Safety Report 8809947 (Version 1)
Quarter: 2012Q4

REPORT INFORMATION
  Report Type: 
  Country: BR (occurrence: BR)
  Receive Date: 20120926
  Receipt Date: 20120926
  Transmission Date: 20130627
  Serious: Yes (Other)
  Sender: FDA-Public Use
  Company Number: BR-009507513-1209BRA009381

PATIENT
  Age: 48 Year
  Sex: Female
  Weight: 75 kg

DRUGS (3)
  1. ZOCOR [Suspect]
     Indication: BLOOD CHOLESTEROL
     Dosage: UNK UNK, qd
     Route: 048
  2. METICORTEN [Suspect]
     Indication: TENDONITIS
     Dosage: 5 mg, qd
     Route: 048
     Dates: start: 201206
  3. METICORTEN [Suspect]
     Dosage: UNK

REACTIONS (7)
  - Systemic lupus erythematosus [Not Recovered/Not Resolved]
  - Hypertension [Not Recovered/Not Resolved]
  - Fluid retention [Not Recovered/Not Resolved]
  - Swelling [Unknown]
  - Drug ineffective [Unknown]
  - Drug administration error [Unknown]
  - Wrong technique in drug usage process [Unknown]
